FAERS Safety Report 4549034-7 (Version None)
Quarter: 2004Q4

REPORT INFORMATION
  Report Type: 
  Country: None (occurrence: None)
  Receive Date: 20041227
  Receipt Date: 20041008
  Transmission Date: 20050328
  Serious: No
  Sender: FDA-Public Use
  Company Number: 04P-163-0276884-00

PATIENT
  Age: 41 Year
  Sex: Male
  Weight: 123 kg

DRUGS (1)
  1. HUMIRA [Suspect]
     Indication: PSORIATIC ARTHROPATHY
     Dosage: 40 MG, 1 IN 2 WK, SUBCUTANEOUS
     Route: 058
     Dates: start: 20030901

REACTIONS (4)
  - ALOPECIA [None]
  - DIZZINESS [None]
  - DRUG INEFFECTIVE [None]
  - VISION BLURRED [None]
